FAERS Safety Report 6966169-X (Version None)
Quarter: 2010Q3

REPORT INFORMATION
  Report Type: 
  Country: None (occurrence: None)
  Receive Date: 20100903
  Receipt Date: 20100825
  Transmission Date: 20110219
  Serious: Yes (Other)
  Sender: FDA-Public Use
  Company Number: GXKR2010TW09640

PATIENT
  Age: 53 Year
  Sex: Female

DRUGS (4)
  1. QUETIAPINE (NGX) [Interacting]
     Indication: MOOD ALTERED
     Dosage: 100 MG, QD
     Route: 065
  2. VALPROIC ACID [Suspect]
     Indication: DEPRESSION
     Dosage: 500 MG/DAY
     Route: 065
  3. VALPROIC ACID [Interacting]
     Dosage: TITRATED UPTO 1000 MG, QD
     Route: 065
  4. SERTRALINE HYDROCHLORIDE [Concomitant]
     Indication: DEPRESSION
     Dosage: 50 MG, QD
     Route: 065

REACTIONS (6)
  - AGITATION [None]
  - CONFUSIONAL STATE [None]
  - DELIRIUM [None]
  - DISORIENTATION [None]
  - DRUG INTERACTION [None]
  - HALLUCINATION, VISUAL [None]
